FAERS Safety Report 21455064 (Version 2)
Quarter: 2023Q2

REPORT INFORMATION
  Report Type: Report from Study
  Country: BR (occurrence: BR)
  Receive Date: 20221014
  Receipt Date: 20230402
  Transmission Date: 20230722
  Serious: Yes (Other)
  Sender: FDA-Public Use
  Company Number: BR-JNJFOC-20221013503

PATIENT
  Age: 37 Year
  Sex: Male
  Weight: 85 kg

DRUGS (1)
  1. SIMPONI [Suspect]
     Active Substance: GOLIMUMAB
     Indication: Ankylosing spondylitis
     Route: 058
     Dates: start: 20220919, end: 20220919

REACTIONS (5)
  - Ankylosing spondylitis [Unknown]
  - Psoriasis [Unknown]
  - Rhinitis [Unknown]
  - Headache [Unknown]
  - Drug ineffective [Unknown]

NARRATIVE: CASE EVENT DATE: 20220101
